FAERS Safety Report 17374414 (Version 1)
Quarter: 2020Q1

REPORT INFORMATION
  Report Type: Spontaneous
  Country: US (occurrence: US)
  Receive Date: 20200206
  Receipt Date: 20200206
  Transmission Date: 20200409
  Serious: No
  Sender: FDA-Public Use
  Company Number: US-TEVA-2020-US-1179119

PATIENT
  Sex: Female

DRUGS (1)
  1. CLONIDINE. [Suspect]
     Active Substance: CLONIDINE
     Route: 065

REACTIONS (6)
  - Therapeutic product effect incomplete [Unknown]
  - Skin disorder [Unknown]
  - Infection [Unknown]
  - Pruritus [Unknown]
  - Product adhesion issue [Unknown]
  - Product odour abnormal [Unknown]
